FAERS Safety Report 7421881-3 (Version None)
Quarter: 2011Q2

REPORT INFORMATION
  Report Type: 
  Country: None (occurrence: None)
  Receive Date: 20110418
  Receipt Date: 20110411
  Transmission Date: 20111010
  Serious: Yes (Other)
  Sender: FDA-Public Use
  Company Number: US-PERRIGO-11US003028

PATIENT
  Sex: Female
  Weight: 63.492 kg

DRUGS (3)
  1. LOPERAMIDE HYDROCHLORIDE 2 MG 224 [Suspect]
     Indication: DIARRHOEA
     Dosage: 12-16 MG DAILY
     Route: 048
     Dates: start: 20070401
  2. SYNTHROID [Concomitant]
     Indication: BASEDOW'S DISEASE
     Dosage: 88 MCG, QD
     Route: 048
     Dates: start: 20071001
  3. QUESTRAN [Suspect]
     Indication: DIARRHOEA
     Dosage: UNK
     Route: 048
     Dates: start: 20101001, end: 20110101

REACTIONS (3)
  - MACULAR DEGENERATION [None]
  - INCORRECT DRUG ADMINISTRATION DURATION [None]
  - OVERDOSE [None]
